FAERS Safety Report 4389422-5 (Version None)
Quarter: 2004Q3

REPORT INFORMATION
  Report Type: 
  Country: None (occurrence: None)
  Receive Date: 20040702
  Receipt Date: 20030130
  Transmission Date: 20050211
  Serious: Yes (Death)
  Sender: FDA-Public Use
  Company Number: US-MERCK-0302USA00115

PATIENT
  Age: 62 Year
  Sex: Female
  Weight: 63 kg

DRUGS (10)
  1. AMITRIPTYLINE HYDROCHLORIDE [Concomitant]
     Route: 065
  2. DIETHYLPROPION HYDROCHLORIDE [Concomitant]
     Route: 065
  3. PRINZIDE [Concomitant]
     Route: 065
  4. ARAVA [Concomitant]
     Route: 065
  5. PHENDIMETRAZINE HYDROCHLORIDE [Concomitant]
     Route: 065
  6. PHENTERMINE [Concomitant]
     Route: 065
  7. PHENYLPROPANOLAMINE [Concomitant]
     Route: 065
  8. PREDNISONE [Concomitant]
     Route: 065
  9. VIOXX [Suspect]
     Indication: RHEUMATOID ARTHRITIS
     Route: 048
     Dates: start: 20000301
  10. MERIDIA [Concomitant]
     Route: 065

REACTIONS (3)
  - ADVERSE EVENT [None]
  - CARDIOPULMONARY FAILURE [None]
  - DEATH [None]
